FAERS Safety Report 9059924 (Version 1)
Quarter: 2013Q1

REPORT INFORMATION
  Report Type: Spontaneous
  Country: US (occurrence: None)
  Receive Date: 20130207
  Receipt Date: 20130207
  Transmission Date: 20140127
  Serious: Yes (Disabling)
  Sender: FDA-Public Use
  Company Number: None

PATIENT
  Age: 70 Year
  Sex: Female
  Weight: 72.58 kg

DRUGS (2)
  1. LEVOTHYROXINE [Suspect]
     Indication: THYROID DISORDER
     Dates: start: 20090101, end: 20111111
  2. CLONIDINE [Suspect]
     Indication: HYPERTENSION
     Dosage: 2 TABLETS 2 EACH DAY,MORN+NI PO
     Dates: start: 20090101, end: 20130101

REACTIONS (1)
  - Alopecia [None]
